FAERS Safety Report 7291182-5 (Version None)
Quarter: 2011Q1

REPORT INFORMATION
  Report Type: 
  Country: None (occurrence: None)
  Receive Date: 20110214
  Receipt Date: 20110201
  Transmission Date: 20110831
  Serious: Yes (Hospitalization, Disabling, Other)
  Sender: FDA-Public Use
  Company Number: US-MERCK-0611USA03475

PATIENT
  Age: 52 Year
  Sex: Female
  Weight: 69 kg

DRUGS (20)
  1. HYDROXYZINE [Concomitant]
     Indication: NAUSEA
     Route: 065
     Dates: start: 20060601
  2. KETOROLAC TROMETHAMINE [Concomitant]
     Indication: ARTHRITIS
     Route: 065
     Dates: start: 20060401
  3. FORTEO [Concomitant]
     Indication: ARTHRITIS
     Route: 030
     Dates: start: 20060601
  4. FOSAMAX PLUS D [Suspect]
     Indication: OSTEOPOROSIS
     Route: 048
  5. KENALOG [Concomitant]
     Indication: ARTHRITIS
     Route: 065
     Dates: start: 20060701, end: 20060801
  6. FOSAMAX [Suspect]
     Indication: OSTEOPOROSIS
     Route: 048
     Dates: start: 20060701, end: 20061101
  7. QVAR 40 [Concomitant]
     Indication: ASTHMA
     Route: 065
     Dates: start: 20050801
  8. ACETAMINOPHEN AND HYDROCODONE BITARTRATE [Concomitant]
     Indication: ARTHRITIS
     Route: 065
     Dates: start: 20060601
  9. POTASSIUM (UNSPECIFIED) [Concomitant]
     Indication: HYPOKALAEMIA
     Route: 065
     Dates: start: 19910101
  10. GUAIFENESIN [Concomitant]
     Indication: NASAL DECONGESTION THERAPY
     Route: 065
     Dates: start: 20060101, end: 20070601
  11. ALLOPURINOL [Concomitant]
     Indication: GOUT
     Route: 065
     Dates: start: 20060101
  12. ERYTHROMYCIN [Concomitant]
     Indication: PROPHYLAXIS
     Route: 065
     Dates: start: 19870801
  13. ASTELIN [Concomitant]
     Indication: HYPERSENSITIVITY
     Route: 065
     Dates: start: 20060101, end: 20060701
  14. OXAPRAZINE [Concomitant]
     Indication: ARTHRITIS
     Route: 065
     Dates: start: 20060601, end: 20071001
  15. ALBUTEROL [Concomitant]
     Indication: ASTHMA
     Route: 065
     Dates: start: 20050801
  16. ACETAMINOPHEN AND HYDROCODONE BITARTRATE [Concomitant]
     Indication: ARTHRALGIA
     Route: 065
     Dates: start: 20060601
  17. SEREVENT [Concomitant]
     Indication: ASTHMA
     Route: 065
     Dates: start: 20050801
  18. ACTONEL [Suspect]
     Indication: OSTEOPOROSIS
     Route: 048
     Dates: start: 20060601, end: 20060701
  19. FUROSEMIDE [Concomitant]
     Indication: FLUID RETENTION
     Route: 065
     Dates: start: 20060301, end: 20071001
  20. COLCHICINE [Concomitant]
     Indication: GOUT
     Route: 065
     Dates: start: 20060101

REACTIONS (57)
  - SYSTEMIC LUPUS ERYTHEMATOSUS [None]
  - HYPOKALAEMIA [None]
  - ABDOMINAL DISCOMFORT [None]
  - NECK PAIN [None]
  - DEPRESSION [None]
  - BONE DISORDER [None]
  - GENERAL SYMPTOM [None]
  - DEHYDRATION [None]
  - ECCHYMOSIS [None]
  - FIBROSIS [None]
  - SKIN LESION [None]
  - SKIN DISORDER [None]
  - PULPITIS DENTAL [None]
  - INTESTINAL FUNCTIONAL DISORDER [None]
  - DRY MOUTH [None]
  - SUBCUTANEOUS NODULE [None]
  - NEUTROPHIL COUNT [None]
  - MOUTH ULCERATION [None]
  - DYSGEUSIA [None]
  - CHEILITIS [None]
  - DERMATITIS CONTACT [None]
  - ALLERGY TO ARTHROPOD STING [None]
  - ERYTHEMA NODOSUM [None]
  - MUSCLE SPASMS [None]
  - HYPERKERATOSIS [None]
  - CHEST PAIN [None]
  - ARTHROPATHY [None]
  - ROTATOR CUFF SYNDROME [None]
  - HOUSE DUST ALLERGY [None]
  - HEADACHE [None]
  - OSTEOPENIA [None]
  - DYSPEPSIA [None]
  - NAUSEA [None]
  - AUTOIMMUNE DISORDER [None]
  - OSTEONECROSIS OF JAW [None]
  - HYPOVOLAEMIA [None]
  - SKIN FISSURES [None]
  - SKIN DEGENERATIVE DISORDER [None]
  - MALAISE [None]
  - VOMITING [None]
  - VITAMIN D DEFICIENCY [None]
  - FATIGUE [None]
  - BACK PAIN [None]
  - ADVERSE DRUG REACTION [None]
  - DRUG HYPERSENSITIVITY [None]
  - DIARRHOEA [None]
  - IODINE ALLERGY [None]
  - INFLUENZA [None]
  - GINGIVAL PAIN [None]
  - APHAGIA [None]
  - ULCER [None]
  - TREATMENT NONCOMPLIANCE [None]
  - STRESS [None]
  - ORAL DISORDER [None]
  - DERMATITIS [None]
  - TEMPOROMANDIBULAR JOINT SYNDROME [None]
  - BUTTERFLY RASH [None]
